FAERS Safety Report 20058731 (Version 4)
Quarter: 2021Q4

REPORT INFORMATION
  Report Type: Report from Study
  Country: US (occurrence: US)
  Receive Date: 20211111
  Receipt Date: 20211201
  Transmission Date: 20220304
  Serious: No
  Sender: FDA-Public Use
  Company Number: US-NOVARTISTESTPH-NVSC2021US258658

PATIENT
  Age: 44 Year
  Sex: Female

DRUGS (3)
  1. KESIMPTA [Suspect]
     Active Substance: OFATUMUMAB
     Indication: Product used for unknown indication
     Dosage: 0.4 ML, QW
     Route: 058
     Dates: start: 20211110, end: 20211110
  2. KESIMPTA [Suspect]
     Active Substance: OFATUMUMAB
     Dosage: 20MG/0.4ML, AS DIRECTED
     Route: 058
  3. LEXAPRO [Concomitant]
     Active Substance: ESCITALOPRAM OXALATE
     Indication: Product used for unknown indication
     Route: 065

REACTIONS (5)
  - Pain [Unknown]
  - Pyrexia [Unknown]
  - Feeling abnormal [Recovering/Resolving]
  - Influenza like illness [Unknown]
  - Headache [Unknown]

NARRATIVE: CASE EVENT DATE: 20211110
